FAERS Safety Report 21561194 (Version 1)
Quarter: 2022Q4

REPORT INFORMATION
  Report Type: Spontaneous
  Country: CA (occurrence: CA)
  Receive Date: 20221107
  Receipt Date: 20221107
  Transmission Date: 20230112
  Serious: Yes (Hospitalization, Other)
  Sender: FDA-Public Use
  Company Number: CA-ORGANON-O2211CAN000436

PATIENT
  Age: 57 Year
  Sex: Male

DRUGS (6)
  1. SINGULAIR [Suspect]
     Active Substance: MONTELUKAST SODIUM
     Indication: Product used for unknown indication
     Dosage: UNK (DOSAGE FORM REPORTED AS NOT SPECIFIED)
     Route: 065
  2. BUDESONIDE\FORMOTEROL FUMARATE [Suspect]
     Active Substance: BUDESONIDE\FORMOTEROL FUMARATE
     Indication: Product used for unknown indication
     Dosage: UNK
  3. MEPOLIZUMAB [Suspect]
     Active Substance: MEPOLIZUMAB
     Indication: Product used for unknown indication
     Dosage: 100 MILLIGRAM (ROUTE REPORTED AS INTRAVENOUS (NOT OTHERWISE SPECIFIE))
     Route: 042
  4. MEPOLIZUMAB [Suspect]
     Active Substance: MEPOLIZUMAB
     Indication: Asthma
     Dosage: 100 MILLIGRAM (ROUTE REPORTED AS INTRAVENOUS (NOT OTHERWISE SPECIFIE))
     Route: 042
  5. ALBUTEROL [Suspect]
     Active Substance: ALBUTEROL
     Indication: Product used for unknown indication
     Dosage: UNK (DOSAGE FORM: NOT SPECIFIED)
     Route: 065
  6. SPIRIVA [Suspect]
     Active Substance: TIOTROPIUM BROMIDE MONOHYDRATE
     Indication: Product used for unknown indication
     Dosage: UNK (DOSAGE FORM: NOT SPECIFIED)
     Route: 065

REACTIONS (9)
  - Acute myocardial infarction [Unknown]
  - Angina pectoris [Unknown]
  - Aortic valve disease [Unknown]
  - Cardiac arrest [Unknown]
  - Condition aggravated [Unknown]
  - General physical condition abnormal [Unknown]
  - Pneumonia [Unknown]
  - Product dose omission issue [Unknown]
  - Stent placement [Unknown]
